FAERS Safety Report 18451822 (Version 1)
Quarter: 2020Q4

REPORT INFORMATION
  Report Type: Spontaneous
  Country: ES (occurrence: ES)
  Receive Date: 20201102
  Receipt Date: 20201102
  Transmission Date: 20210114
  Serious: Yes (Hospitalization)
  Sender: FDA-Public Use
  Company Number: NVSC2020ES287470

PATIENT
  Age: 92 Year
  Sex: Female

DRUGS (3)
  1. LINEZOLID. [Suspect]
     Active Substance: LINEZOLID
     Indication: RESPIRATORY TRACT INFECTION
     Dosage: 600 MG, Q12H (600MG 300ML FRASCO CADA 12H IV)
     Route: 042
     Dates: start: 20201006, end: 20201013
  2. MOXIFLOXACIN. [Suspect]
     Active Substance: MOXIFLOXACIN
     Indication: PNEUMONIA
     Dosage: 400 MG, QD (400MG/24H 5 DIAS IV EN INGRESO PLUS ORAL EN DOMICILIO)
     Route: 042
     Dates: start: 20200927
  3. MEROPENEM. [Suspect]
     Active Substance: MEROPENEM
     Indication: NOSOCOMIAL INFECTION
     Dosage: 1 G, QD (1 VIAL)
     Route: 042
     Dates: start: 20201006, end: 20201013

REACTIONS (1)
  - Clostridium difficile colitis [Unknown]

NARRATIVE: CASE EVENT DATE: 20201007
